FAERS Safety Report 6215686-9 (Version None)
Quarter: 2009Q2

REPORT INFORMATION
  Report Type: 
  Country: None (occurrence: None)
  Receive Date: 20090605
  Receipt Date: 20090429
  Transmission Date: 20091009
  Serious: No
  Sender: FDA-Public Use
  Company Number: US-BAYER-200919352NA

PATIENT
  Age: 58 Year
  Sex: Male

DRUGS (3)
  1. AVELOX [Suspect]
     Indication: CELLULITIS
     Dates: start: 20080701
  2. BACTRIM DS [Suspect]
     Indication: CELLULITIS
     Dates: start: 20080701
  3. KEFLEX [Suspect]
     Indication: CELLULITIS
     Dates: start: 20080701

REACTIONS (3)
  - THERAPEUTIC RESPONSE UNEXPECTED [None]
  - URTICARIA [None]
  - WEIGHT INCREASED [None]
